FAERS Safety Report 9083795 (Version 1)
Quarter: 2013Q1

REPORT INFORMATION
  Report Type: Report from Study
  Country: US (occurrence: US)
  Receive Date: 20130130
  Receipt Date: 20130130
  Transmission Date: 20140127
  Serious: No
  Sender: FDA-Public Use
  Company Number: US-ABBOTT-12P-163-0981070-00

PATIENT
  Age: 57 Year
  Sex: Female

DRUGS (5)
  1. HUMIRA [Suspect]
     Indication: RHEUMATOID ARTHRITIS
     Route: 058
     Dates: start: 201203
  2. METHOTREXATE [Concomitant]
     Indication: PRODUCT USED FOR UNKNOWN INDICATION
  3. UNKNOWN  MEDICATION [Concomitant]
     Indication: OSTEOPOROSIS
  4. AMBIEN [Concomitant]
     Indication: INSOMNIA
     Dosage: AT BEDTIME
  5. OXYCODONE / ACETAMINOPHEN [Concomitant]
     Indication: PAIN

REACTIONS (1)
  - Headache [Not Recovered/Not Resolved]
